FAERS Safety Report 6243950-6 (Version None)
Quarter: 2009Q2

REPORT INFORMATION
  Report Type: 
  Country: None (occurrence: None)
  Receive Date: 20090623
  Receipt Date: 20090615
  Transmission Date: 20091009
  Serious: Yes (Other)
  Sender: FDA-Public Use
  Company Number: IPS_01688_2009

PATIENT
  Sex: Female
  Weight: 49.8957 kg

DRUGS (4)
  1. APOKYN [Suspect]
     Indication: PARKINSON'S DISEASE
     Dosage: DF SUBCUTANEOUS 0.4 ML PRN SUBCUTANEOUS 0.4 ML QD SUBCUTANEOUS
     Route: 058
     Dates: start: 20090401, end: 20090501
  2. APOKYN [Suspect]
     Indication: PARKINSON'S DISEASE
     Dosage: DF SUBCUTANEOUS 0.4 ML PRN SUBCUTANEOUS 0.4 ML QD SUBCUTANEOUS
     Route: 058
     Dates: start: 20090501, end: 20090608
  3. APOKYN [Suspect]
     Indication: PARKINSON'S DISEASE
     Dosage: DF SUBCUTANEOUS 0.4 ML PRN SUBCUTANEOUS 0.4 ML QD SUBCUTANEOUS
     Route: 058
     Dates: start: 20090611
  4. SINEMET [Concomitant]

REACTIONS (4)
  - BLOOD PRESSURE FLUCTUATION [None]
  - DRUG INEFFECTIVE [None]
  - HYPOTENSION [None]
  - TRANSIENT ISCHAEMIC ATTACK [None]
